FAERS Safety Report 26204516 (Version 1)
Quarter: 2025Q4

REPORT INFORMATION
  Report Type: Spontaneous
  Country: EU (occurrence: EU)
  Receive Date: 20251227
  Receipt Date: 20251227
  Transmission Date: 20260118
  Serious: Yes (Death, Other)
  Sender: AUROBINDO
  Company Number: EU-PFIZER INC-2021114014

PATIENT

DRUGS (7)
  1. PREDNISONE [Suspect]
     Active Substance: PREDNISONE
     Indication: Angioimmunoblastic T-cell lymphoma
     Dosage: 40 MG/M2, CYCLIC (ON DAYS 1 TO 5), EVERY 3 WEEKS
     Route: 061
  2. DOXORUBICIN HYDROCHLORIDE [Suspect]
     Active Substance: DOXORUBICIN HYDROCHLORIDE
     Indication: Angioimmunoblastic T-cell lymphoma
     Dosage: 50 MG/M2, CYCLIC, EVERY 3 WEEKS
  3. CYCLOPHOSPHAMIDE [Suspect]
     Active Substance: CYCLOPHOSPHAMIDE
     Indication: Angioimmunoblastic T-cell lymphoma
     Dosage: 750 MG/M^2, CYCLIC, EVERY 3 WEEKS
  4. LENALIDOMIDE [Suspect]
     Active Substance: LENALIDOMIDE
     Indication: Angioimmunoblastic T-cell lymphoma
     Dosage: 25 MG, CYCLIC (ON DAYS 1 TO 14), EVERY 3 WEEKS
     Route: 061
  5. VINCRISTINE SULFATE [Suspect]
     Active Substance: VINCRISTINE SULFATE
     Indication: Angioimmunoblastic T-cell lymphoma
     Dosage: 1.4 MG/M2, CYCLIC (UP TO A MAXIMUM DOSE OF 2 MG) ON DAY 1, EVERY 3 WEEKS
  6. HEPARIN [Concomitant]
     Active Substance: HEPARIN SODIUM
     Indication: Thrombosis prophylaxis
     Dosage: UNK
     Route: 065
  7. METHOTREXATE [Concomitant]
     Active Substance: METHOTREXATE
     Indication: Product used for unknown indication
     Dosage: 4 INTRATHECAL INJECTIONS ADMINISTERED DURING THE FIRST 4 CYCLES

REACTIONS (1)
  - Sepsis [Fatal]
